FAERS Safety Report 23631946 (Version 1)
Quarter: 2024Q1

REPORT INFORMATION
  Report Type: Spontaneous
  Country: US (occurrence: None)
  Receive Date: 20240313
  Receipt Date: 20240313
  Transmission Date: 20240410
  Serious: Yes (Other)
  Sender: FDA-Public Use
  Company Number: None

PATIENT
  Age: 3 Year
  Sex: Male
  Weight: 12.15 kg

DRUGS (1)
  1. OSELTAMIVIR PHOSPHATE [Suspect]
     Active Substance: OSELTAMIVIR PHOSPHATE
     Indication: Influenza
     Dosage: 2.5 ML TWICE A DAY ORAL
     Route: 048
     Dates: start: 20240311, end: 20240312

REACTIONS (5)
  - Abnormal behaviour [None]
  - Screaming [None]
  - Moaning [None]
  - Eating disorder [None]
  - Aggression [None]

NARRATIVE: CASE EVENT DATE: 20240312
